FAERS Safety Report 13456644 (Version 1)
Quarter: 2017Q2

REPORT INFORMATION
  Report Type: Spontaneous
  Country: US (occurrence: US)
  Receive Date: 20170418
  Receipt Date: 20170418
  Transmission Date: 20170830
  Serious: No
  Sender: FDA-Public Use
  Company Number: US-SEBELA IRELAND LIMITED-2017SEB00032

PATIENT
  Sex: Female
  Weight: 95.69 kg

DRUGS (1)
  1. IMURAN [Suspect]
     Active Substance: AZATHIOPRINE
     Indication: JUVENILE IDIOPATHIC ARTHRITIS
     Dosage: UNK
     Route: 048
     Dates: end: 2014

REACTIONS (1)
  - Abdominal discomfort [Recovered/Resolved]
